FAERS Safety Report 11720323 (Version 2)
Quarter: 2016Q2

REPORT INFORMATION
  Report Type: Spontaneous
  Country: CA (occurrence: CA)
  Receive Date: 20151110
  Receipt Date: 20160606
  Transmission Date: 20160815
  Serious: No
  Sender: FDA-Public Use
  Company Number: CA-GLAXOSMITHKLINE-CA2015160024

PATIENT
  Sex: Female
  Weight: 61.24 kg

DRUGS (1)
  1. NICORETTE [Suspect]
     Active Substance: NICOTINE
     Indication: SMOKING CESSATION THERAPY
     Dosage: 10 DF, UNK
     Route: 048

REACTIONS (5)
  - Incorrect drug administration duration [Not Recovered/Not Resolved]
  - Nicotine dependence [Not Recovered/Not Resolved]
  - Cough [Not Recovered/Not Resolved]
  - Product label issue [Unknown]
  - Insomnia [Not Recovered/Not Resolved]
